FAERS Safety Report 4928121-5 (Version None)
Quarter: 2006Q1

REPORT INFORMATION
  Report Type: 
  Country: None (occurrence: None)
  Receive Date: 20060223
  Receipt Date: 20060213
  Transmission Date: 20060701
  Serious: Yes (Other)
  Sender: FDA-Public Use
  Company Number: 2006022513

PATIENT
  Age: 25 Year
  Sex: Male

DRUGS (1)
  1. NICORETTE [Suspect]
     Indication: SMOKING CESSATION THERAPY
     Dosage: ONE 15 MG PATCH ONCE, TRANSDERMAL
     Route: 062
     Dates: start: 20060210, end: 20060210

REACTIONS (2)
  - BURNING SENSATION [None]
  - SYNCOPE [None]
